FAERS Safety Report 9860731 (Version 1)
Quarter: 2014Q1

REPORT INFORMATION
  Report Type: Spontaneous
  Country: BR (occurrence: BR)
  Receive Date: 20140202
  Receipt Date: 20140202
  Transmission Date: 20141002
  Serious: No
  Sender: FDA-Public Use
  Company Number: BR-ALLERGAN-1300846US

PATIENT
  Age: 38 Year
  Sex: Male
  Weight: 70 kg

DRUGS (5)
  1. BOTOX [Suspect]
     Indication: SKIN WRINKLING
     Dosage: 8 UNITS, SINGLE
     Route: 030
     Dates: start: 20121217, end: 20121217
  2. BOTOX [Suspect]
     Indication: SKIN WRINKLING
     Dosage: 8 UNITS, SINGLE
     Route: 030
     Dates: start: 20121217, end: 20121217
  3. DYSPORT [Concomitant]
     Indication: SKIN WRINKLING
     Dosage: UNK UNK, SINGLE
  4. LEXAPRO [Concomitant]
  5. STILNOX [Concomitant]

REACTIONS (2)
  - Dizziness [Recovered/Resolved]
  - Pain [Recovered/Resolved with Sequelae]
